FAERS Safety Report 11881805 (Version 1)
Quarter: 2015Q4

REPORT INFORMATION
  Report Type: Spontaneous
  Country: US (occurrence: None)
  Receive Date: 20151230
  Receipt Date: 20151230
  Transmission Date: 20160305
  Serious: Yes (Other)
  Sender: FDA-Public Use
  Company Number: None

PATIENT
  Age: 70 Year
  Sex: Female
  Weight: 73.2 kg

DRUGS (1)
  1. SUTENT [Suspect]
     Active Substance: SUNITINIB MALATE
     Indication: NEOPLASM
     Dosage: 50 MG, DAILY X 28D; 14DAYOFF?
     Route: 048
     Dates: start: 201509

REACTIONS (4)
  - Diarrhoea [None]
  - Yellow skin [None]
  - Dyspnoea [None]
  - Feeling cold [None]

NARRATIVE: CASE EVENT DATE: 20151001
